FAERS Safety Report 7788385-X (Version None)
Quarter: 2011Q3

REPORT INFORMATION
  Report Type: 
  Country: None (occurrence: None)
  Receive Date: 20110927
  Receipt Date: 20110907
  Transmission Date: 20111222
  Serious: Yes (Death)
  Sender: FDA-Public Use
  Company Number: ADR-5005-034

PATIENT
  Age: 35 Day

DRUGS (2)
  1. NEVIRAPINE [Suspect]
     Indication: ACQUIRED IMMUNODEFICIENCY SYNDROME
     Dosage: 200 MG/DA + ORAL
     Route: 048
     Dates: start: 20030219
  2. ABACAVIR AND LAMIVUDINE (EPZICOM, EPZ) [Concomitant]

REACTIONS (3)
  - PREGNANCY [None]
  - MATERNAL EXPOSURE DURING PREGNANCY [None]
  - ABORTION SPONTANEOUS [None]
